FAERS Safety Report 13578274 (Version 2)
Quarter: 2017Q3

REPORT INFORMATION
  Report Type: Spontaneous
  Country: FI (occurrence: FI)
  Receive Date: 20170524
  Receipt Date: 20170712
  Transmission Date: 20171127
  Serious: Yes (Other)
  Sender: FDA-Public Use
  Company Number: FI-PFIZER INC-2017225851

PATIENT
  Age: 66 Year
  Sex: Female

DRUGS (3)
  1. GABRION [Suspect]
     Active Substance: GABAPENTIN
     Dosage: 300 MG, UNK ( GRADUALLY INCREASED TO 1X3 LEVEL)
     Dates: start: 20161214
  2. PANACOD [Concomitant]
     Active Substance: ACETAMINOPHEN\CODEINE PHOSPHATE
     Dosage: UNK
  3. DIAPAM [Concomitant]
     Active Substance: DIAZEPAM
     Indication: MUSCLE RELAXANT THERAPY
     Dosage: 10 MG, UNK (1X1-3)

REACTIONS (1)
  - Seizure [Unknown]
